FAERS Safety Report 7065355-0 (Version None)
Quarter: 2010Q4

REPORT INFORMATION
  Report Type: 
  Country: None (occurrence: None)
  Receive Date: 20101027
  Receipt Date: 20101018
  Transmission Date: 20110411
  Serious: Yes (Death)
  Sender: FDA-Public Use
  Company Number: JP-WATSON-2010-13126

PATIENT
  Age: 83 Year
  Sex: Female

DRUGS (4)
  1. METHYLPREDNISOLONE ACETATE [Suspect]
     Indication: EOSINOPHILIC LEUKAEMIA
     Dosage: 500 MG, DAILY
     Route: 042
     Dates: start: 20081122
  2. PREDNISOLONE ACETATE [Suspect]
     Indication: EOSINOPHILIC LEUKAEMIA
     Dosage: 30 MG, DAILY
     Dates: start: 20081114
  3. PREDNISOLONE ACETATE [Suspect]
     Dosage: 80 MG, DAILY
  4. IMATINIB [Suspect]
     Indication: HYPEREOSINOPHILIC SYNDROME
     Dosage: 100 MG, DAILY

REACTIONS (2)
  - PULMONARY HAEMORRHAGE [None]
  - TUMOUR LYSIS SYNDROME [None]
